FAERS Safety Report 14001722 (Version 1)
Quarter: 2017Q3

REPORT INFORMATION
  Report Type: Spontaneous
  Country: US (occurrence: US)
  Receive Date: 20170922
  Receipt Date: 20170922
  Transmission Date: 20171128
  Serious: No
  Sender: FDA-Public Use
  Company Number: US-TEVA-807816ACC

PATIENT
  Sex: Female
  Weight: 67.65 kg

DRUGS (2)
  1. PARAGARD T 380A [Suspect]
     Active Substance: COPPER
     Indication: CONTRACEPTION
     Dates: start: 2013, end: 20170913
  2. SYNTHROID [Concomitant]
     Active Substance: LEVOTHYROXINE SODIUM
     Indication: HYPOTHYROIDISM

REACTIONS (5)
  - Muscle spasms [Unknown]
  - Device breakage [Not Recovered/Not Resolved]
  - Complication associated with device [Unknown]
  - Vaginal haemorrhage [Unknown]
  - Vaginal odour [Unknown]
